FAERS Safety Report 4856618-5 (Version None)
Quarter: 2005Q4

REPORT INFORMATION
  Report Type: 
  Country: None (occurrence: None)
  Receive Date: 20051219
  Receipt Date: 20050110
  Transmission Date: 20060501
  Serious: No
  Sender: FDA-Public Use
  Company Number: US-GLAXOSMITHKLINE-A0539919A

PATIENT
  Sex: Female

DRUGS (12)
  1. NICODERM CQ [Suspect]
     Dates: start: 20051126
  2. NICODERM CQ [Suspect]
     Dates: start: 20051126
  3. LITHOBID [Concomitant]
  4. CLONAZEPAM [Concomitant]
  5. SYNTHROID [Concomitant]
  6. CALCIUM GLUCONATE [Concomitant]
  7. ZINC SUPPLEMENT [Concomitant]
  8. GLUTEN [Concomitant]
  9. CRANBERRY [Concomitant]
  10. SOY [Concomitant]
  11. GINSENG [Concomitant]
  12. ALOE [Concomitant]

REACTIONS (5)
  - CHRONIC OBSTRUCTIVE PULMONARY DISEASE [None]
  - HEADACHE [None]
  - NASOPHARYNGITIS [None]
  - NICOTINE DEPENDENCE [None]
  - SNEEZING [None]
